FAERS Safety Report 7468342-3 (Version None)
Quarter: 2011Q2

REPORT INFORMATION
  Report Type: 
  Country: None (occurrence: None)
  Receive Date: 20110509
  Receipt Date: 20110503
  Transmission Date: 20111010
  Serious: Yes (Hospitalization, Other)
  Sender: FDA-Public Use
  Company Number: CHPA2011US06273

PATIENT
  Age: 83 Year
  Sex: Female
  Weight: 65.76 kg

DRUGS (1)
  1. BENEFIBER W/ WHEAT DEXTRIN [Suspect]
     Indication: MEDICAL DIET
     Dosage: 3 DF, TID
     Route: 048
     Dates: start: 20100701, end: 20100901

REACTIONS (6)
  - HIP SURGERY [None]
  - LOWER LIMB FRACTURE [None]
  - WALKING AID USER [None]
  - INFECTION [None]
  - EXPIRED DRUG ADMINISTERED [None]
  - LIMB OPERATION [None]
